FAERS Safety Report 9105867 (Version 2)
Quarter: 2013Q1

REPORT INFORMATION
  Report Type: Spontaneous
  Country: AU (occurrence: AU)
  Receive Date: 20130221
  Receipt Date: 20130311
  Transmission Date: 20140127
  Serious: Yes (Death)
  Sender: FDA-Public Use
  Company Number: AU-B.I. PHARMACEUTICALS,INC./RIDGEFIELD-2013-AU-00159AU

PATIENT
  Sex: Female
  Weight: 55 kg

DRUGS (3)
  1. PRADAXA [Suspect]
     Indication: CEREBROVASCULAR ACCIDENT PROPHYLAXIS
     Dates: start: 20110831, end: 201212
  2. PRADAXA [Suspect]
     Indication: ATRIAL FIBRILLATION
  3. PLAVIX [Concomitant]

REACTIONS (2)
  - Cerebrovascular accident [Fatal]
  - Liver function test abnormal [Unknown]
